FAERS Safety Report 9036979 (Version 1)
Quarter: 2013Q1

REPORT INFORMATION
  Report Type: Spontaneous
  Country: US (occurrence: None)
  Receive Date: 20130118
  Receipt Date: 20130118
  Transmission Date: 20140127
  Serious: No
  Sender: FDA-Public Use
  Company Number: None

PATIENT
  Age: 69 Year
  Sex: Female
  Weight: 108.86 kg

DRUGS (1)
  1. LEVEMIR [Suspect]
     Indication: TYPE 2 DIABETES MELLITUS
     Dosage: 38 UNITS BEDTIME, SQ
     Route: 058
     Dates: start: 20130110, end: 20130114

REACTIONS (6)
  - Injection site rash [None]
  - Injection site pruritus [None]
  - Headache [None]
  - Heart rate increased [None]
  - Vision blurred [None]
  - Pruritus [None]
